FAERS Safety Report 15732957 (Version 2)
Quarter: 2019Q1

REPORT INFORMATION
  Report Type: Report from Study
  Country: None (occurrence: CA)
  Receive Date: 20181218
  Receipt Date: 20190115
  Transmission Date: 20190417
  Serious: Yes (Other)
  Sender: FDA-Public Use
  Company Number: CA-ABBVIE-18K-028-2592320-00

PATIENT
  Age: 56 Year
  Sex: Female

DRUGS (1)
  1. HUMIRA [Suspect]
     Active Substance: ADALIMUMAB
     Indication: HIDRADENITIS
     Route: 058
     Dates: start: 20180309

REACTIONS (9)
  - Seizure [Unknown]
  - Post-traumatic headache [Unknown]
  - Blood pressure decreased [Unknown]
  - Fall [Unknown]
  - Blood glucose increased [Not Recovered/Not Resolved]
  - Pain in extremity [Unknown]
  - Vomiting [Unknown]
  - Eructation [Unknown]
  - Urinary incontinence [Unknown]

NARRATIVE: CASE EVENT DATE: 20181201
